FAERS Safety Report 23675089 (Version 2)
Quarter: 2024Q1

REPORT INFORMATION
  Report Type: Spontaneous
  Country: US (occurrence: US)
  Receive Date: 20240326
  Receipt Date: 20240327
  Transmission Date: 20240409
  Serious: No
  Sender: FDA-Public Use
  Company Number: US-ABBVIE-5686952

PATIENT
  Sex: Female

DRUGS (1)
  1. BOTOX [Suspect]
     Active Substance: ONABOTULINUMTOXINA
     Indication: Impaired gastric emptying
     Dosage: TIME INTERVAL: AS NECESSARY
     Route: 030

REACTIONS (2)
  - Off label use [Not Recovered/Not Resolved]
  - Abdominal pain [Unknown]
